FAERS Safety Report 24626674 (Version 2)
Quarter: 2024Q4

REPORT INFORMATION
  Report Type: Spontaneous
  Country: US (occurrence: US)
  Receive Date: 20241115
  Receipt Date: 20241227
  Transmission Date: 20250115
  Serious: Yes (Other)
  Sender: PFIZER
  Company Number: US-PFIZER INC-202400302938

PATIENT
  Age: 59 Year
  Sex: Male

DRUGS (1)
  1. INLYTA [Suspect]
     Active Substance: AXITINIB
     Dosage: 5MG TABLET TAKE BY MOUTH 1 TABLET TWICE DAILY
     Route: 048
     Dates: start: 20241031

REACTIONS (5)
  - Neuropathy peripheral [Unknown]
  - Fatigue [Not Recovered/Not Resolved]
  - Asthenia [Not Recovered/Not Resolved]
  - Hypoaesthesia [Not Recovered/Not Resolved]
  - Blood pressure increased [Unknown]

NARRATIVE: CASE EVENT DATE: 20241201
